FAERS Safety Report 5367474-3 (Version None)
Quarter: 2007Q2

REPORT INFORMATION
  Report Type: 
  Country: None (occurrence: None)
  Receive Date: 20070622
  Receipt Date: 20061016
  Transmission Date: 20071010
  Serious: No
  Sender: FDA-Public Use
  Company Number: US-ASTRAZENECA-2006UW19959

PATIENT
  Sex: Female

DRUGS (1)
  1. PULMICORT [Suspect]
     Indication: CHRONIC OBSTRUCTIVE PULMONARY DISEASE
     Route: 055

REACTIONS (2)
  - DYSPNOEA [None]
  - INCREASED UPPER AIRWAY SECRETION [None]
